FAERS Safety Report 15405916 (Version 1)
Quarter: 2018Q4

REPORT INFORMATION
  Report Type: Spontaneous
  Country: PT (occurrence: PT)
  Receive Date: 20180920
  Receipt Date: 20180920
  Transmission Date: 20190204
  Serious: Yes (Hospitalization, Disabling, Other)
  Sender: FDA-Public Use
  Company Number: PT-AUROBINDO-AUR-APL-2018-040661

PATIENT
  Age: 37 Year
  Sex: Female

DRUGS (3)
  1. FOSFOMICINA /00552501/ [Suspect]
     Active Substance: FOSFOMYCIN
     Indication: CYSTITIS
     Dosage: ()
     Route: 065
  2. BUTYLSCOPOLAMINE [Suspect]
     Active Substance: BUTYLSCOPOLAMINE
     Indication: CYSTITIS
     Dosage: ()
     Route: 065
  3. AMOXICILLIN+CLAVULANIC ACID [Suspect]
     Active Substance: AMOXICILLIN\CLAVULANIC ACID
     Indication: PRODUCT USED FOR UNKNOWN INDICATION
     Dosage: ()
     Route: 065

REACTIONS (2)
  - Pyelonephritis acute [Unknown]
  - Drug ineffective [Unknown]
